APPROVED DRUG PRODUCT: ITRACONAZOLE
Active Ingredient: ITRACONAZOLE
Strength: 10MG/ML
Dosage Form/Route: SOLUTION;ORAL
Application: A208481 | Product #001
Applicant: APOTEX INC
Approved: Aug 2, 2019 | RLD: No | RS: No | Type: DISCN